FAERS Safety Report 8300096 (Version 4)
Quarter: 2012Q4

REPORT INFORMATION
  Report Type: 
  Country: US (occurrence: US)
  Receive Date: 20111219
  Receipt Date: 20120919
  Transmission Date: 20130627
  Serious: Yes (Other)
  Sender: FDA-Public Use
  Company Number: US-ASTRAZENECA-2011SE24452

PATIENT
  Age: 81 Year
  Sex: Female

DRUGS (1)
  1. CRESTOR [Suspect]
     Route: 048

REACTIONS (8)
  - Blindness [Unknown]
  - Cataract [Unknown]
  - Upper limb fracture [Recovering/Resolving]
  - Pain [Unknown]
  - Back pain [Unknown]
  - Abasia [Unknown]
  - Insomnia [Unknown]
  - Intentional drug misuse [Unknown]
